FAERS Safety Report 4643801-7 (Version None)
Quarter: 2005Q2

REPORT INFORMATION
  Report Type: 
  Country: None (occurrence: None)
  Receive Date: 20050422
  Receipt Date: 20050422
  Transmission Date: 20051028
  Serious: Yes (Other)
  Sender: FDA-Public Use
  Company Number: None

PATIENT
  Age: 57 Year
  Sex: Male
  Weight: 98.4 kg

DRUGS (13)
  1. SIMVASTATIN [Suspect]
  2. METFORMIN HCL [Concomitant]
  3. OMEPRAZOLE [Concomitant]
  4. ACCU-CHEK COMFORT CURVE-H TEST STRIP [Concomitant]
  5. DOCUSATE NA [Concomitant]
  6. TOPIRAMATE [Concomitant]
  7. GABAPENTIN [Concomitant]
  8. VITAMIN B COMPLEX/VITAMIN C [Concomitant]
  9. CLONAZEPAM [Concomitant]
  10. METOPROLOL TARTRATE [Concomitant]
  11. HYPROMELLOSE [Concomitant]
  12. SENNOSIDES [Concomitant]
  13. CAPSAICIN [Concomitant]

REACTIONS (1)
  - MYALGIA [None]
